FAERS Safety Report 12492421 (Version 1)
Quarter: 2016Q2

REPORT INFORMATION
  Report Type: Spontaneous
  Country: GB (occurrence: GB)
  Receive Date: 20160623
  Receipt Date: 20160623
  Transmission Date: 20160815
  Serious: Yes (Hospitalization, Other)
  Sender: FDA-Public Use
  Company Number: GB-PFIZER INC-2016305128

PATIENT
  Age: 74 Year
  Sex: Male

DRUGS (21)
  1. IBUPROFEN. [Suspect]
     Active Substance: IBUPROFEN
     Dosage: 400 MG, 3X/DAY
     Route: 048
  2. FERROUS FUMARATE [Concomitant]
     Active Substance: FERROUS FUMARATE
     Dosage: 210 MG, 3X/DAY
     Route: 048
  3. LACTULOSE. [Concomitant]
     Active Substance: LACTULOSE
     Dosage: 15 ML, 2X/DAY, 3.1-3.7G/5ML
     Route: 048
  4. LERCANIDIPINE [Concomitant]
     Active Substance: LERCANIDIPINE
     Dosage: 20 MG, 1X/DAY IN THE MORNING
     Route: 048
  5. ALLOPURINOL. [Concomitant]
     Active Substance: ALLOPURINOL
     Dosage: 100 MG, 1X/DAY IN THE MORNING
     Route: 048
  6. DOUBLEBASE [Concomitant]
     Active Substance: ISOPROPYL MYRISTATE\PARAFFIN
     Dosage: UNK
     Route: 061
  7. FOSTAIR [Concomitant]
     Active Substance: BECLOMETHASONE\FORMOTEROL
     Dosage: 2 DF, 2X/DAY, 100MICROGRAMS/DOSE / 6MICROGRAMS/DOSE INHALER
     Route: 055
  8. LANSOPRAZOLE. [Concomitant]
     Active Substance: LANSOPRAZOLE
     Dosage: 15 MG, 1X/DAY, IN THE MORNING
     Route: 048
     Dates: start: 20160406
  9. MONTELUKAST [Concomitant]
     Active Substance: MONTELUKAST SODIUM
     Dosage: 10 MG, 1X/DAY AT NIGHT
     Route: 048
  10. SENNA /00571901/ [Concomitant]
     Dosage: 15 MG, 1X/DAY AT NIGHT
     Route: 048
  11. PERINDOPRIL ERBUMINE. [Suspect]
     Active Substance: PERINDOPRIL ERBUMINE
     Dosage: 4 MG, 1X/DAY IN THE MORNING
     Route: 048
  12. CETIRIZINE [Concomitant]
     Active Substance: CETIRIZINE HYDROCHLORIDE
     Dosage: 10 MG, 1X/DAY IN THE MORNING
     Route: 048
  13. SALBUTAMOL [Concomitant]
     Active Substance: ALBUTEROL
     Dosage: 2 DF, UNK, 100MICROGRAMS/DOSE INHALER CFC FREE
     Route: 055
  14. BIMATOPROST. [Concomitant]
     Active Substance: BIMATOPROST
     Dosage: 1 DF, 1X/DAY, 100MICROGRAMS/ML 1 DROP BE AT NIGHT
     Route: 047
  15. DALTEPARIN SODIUM [Concomitant]
     Active Substance: DALTEPARIN SODIUM
     Dosage: 5000 IU, 1X/DAY, 5,000UNITS/0.2ML
     Route: 058
  16. FLUCLOXACILLIN [Concomitant]
     Active Substance: FLUCLOXACILLIN
     Dosage: 2 G, 4X/DAY, 2 DOSES GIVEN
     Route: 042
     Dates: start: 20160405
  17. BRINZOLAMIDE [Concomitant]
     Active Substance: BRINZOLAMIDE
     Dosage: 1 DF, 2X/DAY, 10MG/ML BE
     Route: 047
  18. PARACETAMOL [Concomitant]
     Active Substance: ACETAMINOPHEN
     Dosage: 1 G, 4X/DAY
     Route: 048
  19. SIMVASTATIN. [Concomitant]
     Active Substance: SIMVASTATIN
     Dosage: 20 MG, 1X/DAY AT NIGHT
     Route: 048
  20. DIHYDROCODEINE [Concomitant]
     Active Substance: DIHYDROCODEINE
     Dosage: 30 MG, 4X/DAY, 1 DOSE GIVEN.
     Route: 048
     Dates: start: 20160405
  21. FLUTICASONE FUROATE [Concomitant]
     Active Substance: FLUTICASONE FUROATE
     Dosage: 2 DF, 1X/DAY, IN THE MORNING 27.5MICROGRAMS/DOSE
     Route: 045

REACTIONS (3)
  - Acute kidney injury [Recovered/Resolved]
  - Hypotension [Unknown]
  - Hypokalaemia [Unknown]
